FAERS Safety Report 4811017-7 (Version None)
Quarter: 2005Q4

REPORT INFORMATION
  Report Type: 
  Country: None (occurrence: None)
  Receive Date: 20051027
  Receipt Date: 20051018
  Transmission Date: 20060501
  Serious: Yes (Hospitalization)
  Sender: FDA-Public Use
  Company Number: US-JNJFOC-20050806195

PATIENT
  Sex: Male

DRUGS (2)
  1. CONCENTRATED TYLENOL INFANTS' GRAPE [Suspect]
  2. CONCENTRATED TYLENOL INFANTS' GRAPE [Suspect]
     Indication: DRUG USE FOR UNKNOWN INDICATION
     Dosage: {2 1OZ BOTTLES IN 2 WKS

REACTIONS (1)
  - DRUG TOXICITY [None]
